FAERS Safety Report 9328230 (Version 1)
Quarter: 2013Q2

REPORT INFORMATION
  Report Type: Spontaneous
  Country: US (occurrence: US)
  Receive Date: 20130604
  Receipt Date: 20130604
  Transmission Date: 20140414
  Serious: No
  Sender: FDA-Public Use
  Company Number: US-MYLANLABS-2013S1006075

PATIENT
  Age: 74 Year
  Sex: Male
  Weight: 79.38 kg

DRUGS (3)
  1. PIOGLITAZONE [Suspect]
     Indication: DIABETES MELLITUS
     Route: 048
     Dates: start: 20130304, end: 20130311
  2. METFORMIN [Concomitant]
     Route: 048
  3. BLOOD PRESSURE MEDICATION [Concomitant]
     Indication: BLOOD PRESSURE

REACTIONS (2)
  - Drug effect decreased [Recovered/Resolved]
  - Blood glucose increased [Recovered/Resolved]
